FAERS Safety Report 5351829-7 (Version None)
Quarter: 2007Q2

REPORT INFORMATION
  Report Type: 
  Country: None (occurrence: None)
  Receive Date: 20070521
  Receipt Date: 20070305
  Transmission Date: 20071010
  Serious: No
  Sender: FDA-Public Use
  Company Number: WAES 0703USA00724

PATIENT
  Age: 56 Year
  Sex: Female

DRUGS (16)
  1. JANUVIA [Suspect]
     Indication: DIABETES MELLITUS
     Dosage: 100 MG DAILY PO
     Route: 048
     Dates: start: 20061201
  2. ALLEGRA [Concomitant]
  3. AMBIEN [Concomitant]
  4. CYMBALTA [Concomitant]
  5. DIFLUCAN [Concomitant]
  6. DOLAXEN [Concomitant]
  7. FLOVENT [Concomitant]
  8. NEXIUM [Concomitant]
  9. SINGULAIR [Concomitant]
  10. SYNTHROID [Concomitant]
  11. TRIGLIDE [Concomitant]
  12. XOPENEX [Concomitant]
  13. ZETIA [Concomitant]
  14. ACETAMINOPHEN (+) TRAMADOL HYDRO [Concomitant]
  15. ALBUTEROL [Concomitant]
  16. ISOSORBIDE DINITRATE [Concomitant]

REACTIONS (2)
  - BACK PAIN [None]
  - RASH [None]
